FAERS Safety Report 25779516 (Version 2)
Quarter: 2025Q3

REPORT INFORMATION
  Report Type: Spontaneous
  Country: GB (occurrence: GB)
  Receive Date: 20250909
  Receipt Date: 20250915
  Transmission Date: 20251020
  Serious: Yes (Disabling, Other)
  Sender: DR REDDYS
  Company Number: None

PATIENT
  Sex: Female
  Weight: 70 kg

DRUGS (5)
  1. MONTELUKAST [Suspect]
     Active Substance: MONTELUKAST
     Indication: Asthma
     Dosage: 10MG PER DAY; TAKING FOR OVER 20 YEARS DAILY
     Dates: end: 20250815
  2. PULMICORT TURBUHALER [Concomitant]
     Active Substance: BUDESONIDE
     Indication: Asthma
     Dates: start: 2025
  3. UTROGESTAN 100mg x1 per day [Concomitant]
     Indication: Hormone replacement therapy
  4. Estrodiol gel 750 mcg (3 times per week) [Concomitant]
     Indication: Hormone replacement therapy
  5. Estraderm MX 50 Patches (2 times per week) [Concomitant]
     Indication: Hormone replacement therapy
     Dosage: MX 50 PATCHES (2 TIMES PER WEEK)

REACTIONS (1)
  - Drug withdrawal headache [Recovered/Resolved]

NARRATIVE: CASE EVENT DATE: 20250815
